FAERS Safety Report 6344733-9 (Version None)
Quarter: 2009Q3

REPORT INFORMATION
  Report Type: 
  Country: None (occurrence: None)
  Receive Date: 20090904
  Receipt Date: 20090901
  Transmission Date: 20100115
  Serious: No
  Sender: FDA-Public Use
  Company Number: 367971

PATIENT
  Age: 50 Year
  Sex: Male

DRUGS (7)
  1. LEUCOVORIN CALCIUM [Suspect]
     Indication: COLON CANCER STAGE III
     Dosage: INTRAVENOUS (NOT OTHERWISE SPECIFIED)
     Route: 042
     Dates: start: 20090622
  2. FLUOROURACIL [Suspect]
     Indication: COLON CANCER STAGE III
     Dosage: INTRAVENOUS (NOT OTHERWISE SPECIFIED)
     Route: 042
     Dates: start: 20090622, end: 20090622
  3. OXALIPLATIN [Suspect]
     Indication: COLON CANCER STAGE III
     Dosage: INTRAVENOUS (NOT OTHERWISE SPECIFIED)
     Route: 042
     Dates: start: 20090622, end: 20090622
  4. FAMOTIDINE        PRESERVATIVE FREE),SDV (FAMOTIDINE) [Concomitant]
  5. DIPHENHYDRAMTNE HCL  (MCPHERSON) [Concomitant]
  6. DEXAMETHASONE [Concomitant]
  7. GRANISETRON HCL [Concomitant]

REACTIONS (3)
  - BLOOD PRESSURE INCREASED [None]
  - CHILLS [None]
  - INFUSION RELATED REACTION [None]
